FAERS Safety Report 8073491-5 (Version None)
Quarter: 2012Q1

REPORT INFORMATION
  Report Type: 
  Country: None (occurrence: None)
  Receive Date: 20120126
  Receipt Date: 20120126
  Transmission Date: 20120608
  Serious: Yes (Other)
  Sender: FDA-Public Use
  Company Number: None

PATIENT
  Age: 61 Year
  Sex: Female
  Weight: 83.914 kg

DRUGS (1)
  1. CYMBALTA [Suspect]
     Indication: BACK PAIN
     Dosage: 60.0 MG
     Route: 048
     Dates: start: 20110715, end: 20120113

REACTIONS (11)
  - MIDDLE INSOMNIA [None]
  - DYSPNOEA [None]
  - HYPERHIDROSIS [None]
  - NERVOUSNESS [None]
  - WEIGHT INCREASED [None]
  - STRESS [None]
  - SLEEP TERROR [None]
  - HEADACHE [None]
  - AGGRESSION [None]
  - HEART RATE INCREASED [None]
  - BLOOD CHOLESTEROL INCREASED [None]
